FAERS Safety Report 14951574 (Version 1)
Quarter: 2018Q2

REPORT INFORMATION
  Report Type: Spontaneous
  Country: ES (occurrence: ES)
  Receive Date: 20180530
  Receipt Date: 20180530
  Transmission Date: 20180711
  Serious: Yes (Death, Hospitalization, Other)
  Sender: FDA-Public Use
  Company Number: ES-APOTEX-2018AP015096

PATIENT
  Age: 66 Year
  Sex: Female

DRUGS (1)
  1. CLOPIDOGREL [Suspect]
     Active Substance: CLOPIDOGREL BISULFATE
     Indication: GASTROINTESTINAL ISCHAEMIA
     Dosage: UNK
     Route: 065

REACTIONS (4)
  - Shock haemorrhagic [Fatal]
  - Haematemesis [Unknown]
  - Upper gastrointestinal haemorrhage [Fatal]
  - Anaemia [Unknown]
